FAERS Safety Report 25971038 (Version 1)
Quarter: 2025Q4

REPORT INFORMATION
  Report Type: Spontaneous
  Country: US (occurrence: US)
  Receive Date: 20251028
  Receipt Date: 20251028
  Transmission Date: 20260117
  Serious: No
  Sender: GALPHARM INTERNATIONAL
  Company Number: US-PERRIGO-25US000831

PATIENT
  Age: 77 Year
  Sex: Male
  Weight: 88.435 kg

DRUGS (5)
  1. NICOTINE POLACRILEX [Suspect]
     Active Substance: NICOTINE
     Indication: Smoking cessation therapy
     Dosage: 4 MG, PRN
     Route: 002
     Dates: end: 20250112
  2. NICOTINE POLACRILEX [Suspect]
     Active Substance: NICOTINE
     Dosage: 4 MG, PRN
     Route: 002
     Dates: start: 20250113
  3. VITAMIN D NOS [Concomitant]
     Active Substance: CHOLECALCIFEROL\ERGOCALCIFEROL
     Indication: Supplementation therapy
     Dosage: UNK
     Route: 065
     Dates: start: 2023
  4. ASCORBIC ACID [Concomitant]
     Active Substance: ASCORBIC ACID
     Indication: Supplementation therapy
     Dosage: UNK
     Route: 065
     Dates: start: 2023
  5. VITAMIN B COMPLEX [Concomitant]
     Active Substance: CYANOCOBALAMIN\DEXPANTHENOL\NIACINAMIDE\PYRIDOXINE HYDROCHLORIDE\RIBOFLAVIN 5^-PHOSPHATE SODIUM\THIA
     Indication: Supplementation therapy
     Dosage: UNK
     Route: 065
     Dates: start: 2023

REACTIONS (2)
  - Nicotine dependence [Not Recovered/Not Resolved]
  - Therapeutic product effect decreased [Unknown]

NARRATIVE: CASE EVENT DATE: 20250113
